FAERS Safety Report 15200118 (Version 1)
Quarter: 2018Q3

REPORT INFORMATION
  Report Type: Spontaneous
  Country: US (occurrence: US)
  Receive Date: 20180726
  Receipt Date: 20180726
  Transmission Date: 20181010
  Serious: Yes (Hospitalization, Other)
  Sender: FDA-Public Use
  Company Number: US-UCBSA-2018032472

PATIENT
  Age: 60 Year
  Sex: Female

DRUGS (1)
  1. CIMZIA [Suspect]
     Active Substance: CERTOLIZUMAB PEGOL
     Indication: PRODUCT USED FOR UNKNOWN INDICATION
     Dosage: FROM 1 YEAR, NDC #: 50474071079

REACTIONS (2)
  - Clostridium difficile infection [Unknown]
  - Female genital tract fistula [Unknown]

NARRATIVE: CASE EVENT DATE: 20180624
